FAERS Safety Report 8745670 (Version 2)
Quarter: 2012Q4

REPORT INFORMATION
  Report Type: 
  Country: GB (occurrence: GB)
  Receive Date: 20120826
  Receipt Date: 20120910
  Transmission Date: 20130627
  Serious: Yes (Other)
  Sender: FDA-Public Use
  Company Number: GB-BRISTOL-MYERS SQUIBB COMPANY-16898553

PATIENT
  Sex: Female

DRUGS (2)
  1. EFAVIRENZ [Suspect]
     Route: 064
     Dates: start: 2011
  2. TRUVADA [Suspect]
     Route: 064
     Dates: start: 2011

REACTIONS (1)
  - Turner^s syndrome [Unknown]
